FAERS Safety Report 25089345 (Version 1)
Quarter: 2025Q1

REPORT INFORMATION
  Report Type: Spontaneous
  Country: US (occurrence: None)
  Receive Date: 20250317
  Receipt Date: 20250317
  Transmission Date: 20250409
  Serious: Yes (Death, Life-Threatening, Hospitalization)
  Sender: FDA-CTU
  Company Number: None

PATIENT
  Age: 77 Year
  Sex: Male
  Weight: 88 kg

DRUGS (1)
  1. HEPARIN SODIUM IN DEXTROSE [Suspect]
     Active Substance: HEPARIN SODIUM
     Indication: Cardiac failure congestive
     Route: 042
     Dates: start: 20250204, end: 20250205

REACTIONS (5)
  - Haemorrhage [None]
  - Abdominal wall haematoma [None]
  - Cardiogenic shock [None]
  - Multiple organ dysfunction syndrome [None]
  - Hospice care [None]

NARRATIVE: CASE EVENT DATE: 20250205
